FAERS Safety Report 11909188 (Version 2)
Quarter: 2016Q1

REPORT INFORMATION
  Report Type: Spontaneous
  Country: FR (occurrence: FR)
  Receive Date: 20160112
  Receipt Date: 20160302
  Transmission Date: 20160526
  Serious: Yes (Death, Hospitalization)
  Sender: FDA-Public Use
  Company Number: FR-ROCHE-1689517

PATIENT
  Age: 54 Year
  Sex: Male

DRUGS (9)
  1. CELLCEPT [Suspect]
     Active Substance: MYCOPHENOLATE MOFETIL\MYCOPHENOLATE MOFETIL HYDROCHLORIDE
     Indication: PROPHYLAXIS AGAINST GRAFT VERSUS HOST DISEASE
     Route: 048
     Dates: start: 20151115, end: 20151219
  2. CICLOSPORINE [Suspect]
     Active Substance: CYCLOSPORINE
     Indication: PROPHYLAXIS AGAINST GRAFT VERSUS HOST DISEASE
     Route: 048
     Dates: start: 20151118, end: 20151219
  3. CYTARABINE. [Suspect]
     Active Substance: CYTARABINE
     Indication: PRODUCT USED FOR UNKNOWN INDICATION
     Route: 042
     Dates: start: 20151113, end: 20151117
  4. ENDOXAN [Suspect]
     Active Substance: CYCLOPHOSPHAMIDE
     Route: 042
     Dates: start: 20151210
  5. THIOTEPA. [Suspect]
     Active Substance: THIOTEPA
     Indication: PRODUCT USED FOR UNKNOWN INDICATION
     Route: 042
     Dates: start: 20151118, end: 20151119
  6. BUSULFAN [Suspect]
     Active Substance: BUSULFAN
     Indication: PRODUCT USED FOR UNKNOWN INDICATION
     Route: 042
     Dates: start: 20151120, end: 20151123
  7. ENDOXAN [Suspect]
     Active Substance: CYCLOPHOSPHAMIDE
     Indication: PROPHYLAXIS AGAINST GRAFT VERSUS HOST DISEASE
     Route: 042
     Dates: start: 20151128, end: 20151129
  8. BUSULFAN [Suspect]
     Active Substance: BUSULFAN
     Route: 042
     Dates: end: 20151123
  9. CYTARABINE. [Suspect]
     Active Substance: CYTARABINE
     Route: 042
     Dates: start: 20151114, end: 20151117

REACTIONS (13)
  - Blister [Not Recovered/Not Resolved]
  - Pleural effusion [Fatal]
  - Low cardiac output syndrome [Fatal]
  - Hepatocellular injury [Fatal]
  - Multiple organ dysfunction syndrome [Fatal]
  - Acute kidney injury [Fatal]
  - Hepatic failure [Fatal]
  - Palmar-plantar erythrodysaesthesia syndrome [Not Recovered/Not Resolved]
  - Pericardial effusion [Fatal]
  - Confusional state [Fatal]
  - Bone marrow failure [Fatal]
  - Ejection fraction decreased [Fatal]
  - Hallucination, visual [Fatal]

NARRATIVE: CASE EVENT DATE: 20151119
